FAERS Safety Report 24997703 (Version 1)
Quarter: 2025Q1

REPORT INFORMATION
  Report Type: Spontaneous
  Country: AR (occurrence: AR)
  Receive Date: 20250222
  Receipt Date: 20250222
  Transmission Date: 20250409
  Serious: Yes (Life-Threatening, Hospitalization)
  Sender: ACCORD
  Company Number: AR-MLMSERVICE-20250203-PI389490-00289-1

PATIENT
  Age: 43 Year
  Sex: Male

DRUGS (9)
  1. CLONAZEPAM [Suspect]
     Active Substance: CLONAZEPAM
     Indication: Depression
     Dates: start: 2023
  2. ROPINIROLE HYDROCHLORIDE [Suspect]
     Active Substance: ROPINIROLE HYDROCHLORIDE
     Indication: Parkinson^s disease
     Dates: start: 2022
  3. CARBIDOPA\LEVODOPA [Concomitant]
     Active Substance: CARBIDOPA\LEVODOPA
     Indication: Parkinson^s disease
  4. RASAGILINE MESYLATE [Concomitant]
     Active Substance: RASAGILINE MESYLATE
     Indication: Parkinson^s disease
     Dates: start: 2022
  5. PAROXETINE [Concomitant]
     Active Substance: PAROXETINE
     Indication: Depression
     Dates: start: 2023
  6. PAROXETINE [Concomitant]
     Active Substance: PAROXETINE
     Indication: Anxiety
  7. CLONAZEPAM [Suspect]
     Active Substance: CLONAZEPAM
     Indication: Hypersexuality
  8. ROPINIROLE HYDROCHLORIDE [Suspect]
     Active Substance: ROPINIROLE HYDROCHLORIDE
     Indication: Parkinson^s disease
     Dosage: DOSE INCREASED UP TO 16 MG/DAY
     Dates: start: 2023, end: 2023
  9. CLONAZEPAM [Suspect]
     Active Substance: CLONAZEPAM
     Indication: Anxiety

REACTIONS (6)
  - Agitation [Unknown]
  - Fatigue [Unknown]
  - Anxiety [Unknown]
  - Suicide attempt [Unknown]
  - Suicidal behaviour [Unknown]
  - Dopamine agonist withdrawal syndrome [Unknown]

NARRATIVE: CASE EVENT DATE: 20230101
